FAERS Safety Report 10078726 (Version 1)
Quarter: 2014Q2

REPORT INFORMATION
  Report Type: Spontaneous
  Country: US (occurrence: None)
  Receive Date: 20140414
  Receipt Date: 20140414
  Transmission Date: 20141212
  Serious: No
  Sender: FDA-Public Use
  Company Number: None

PATIENT
  Age: 36 Year
  Sex: Female
  Weight: 62.4 kg

DRUGS (11)
  1. MYCOPHENOLIC ACID [Suspect]
     Indication: RENAL TRANSPLANT
     Route: 048
     Dates: start: 20140310
  2. MYCOPHENOLIC ACID [Suspect]
     Indication: PANCREAS TRANSPLANT
     Route: 048
     Dates: start: 20140310
  3. PROGRAF [Concomitant]
  4. ASPIRIN [Concomitant]
  5. ERGOCALCIFEROL [Concomitant]
  6. LANSOPRAZOLE [Concomitant]
  7. METOCLOPRAMIDE [Concomitant]
  8. SODIUM BICARBONATE [Concomitant]
  9. PRAVASTATIN [Concomitant]
  10. METOPROLOL [Concomitant]
  11. MAGNESIUM OXIDE [Concomitant]

REACTIONS (3)
  - Dizziness [None]
  - Nausea [None]
  - Product substitution issue [None]
